FAERS Safety Report 25082837 (Version 5)
Quarter: 2025Q4

REPORT INFORMATION
  Report Type: Report from Study
  Country: US (occurrence: US)
  Receive Date: 20250317
  Receipt Date: 20251008
  Transmission Date: 20260118
  Serious: Yes (Other)
  Sender: ABBVIE
  Company Number: US-ABBVIE-6171738

PATIENT
  Age: 57 Year
  Sex: Female

DRUGS (3)
  1. SKYRIZI [Suspect]
     Active Substance: RISANKIZUMAB-RZAA
     Indication: Psoriasis
     Dosage: TIME INTERVAL: TOTAL: WEEK 0, FORM STRENGTH : 150MG/ML
     Route: 058
     Dates: start: 20240822, end: 20240822
  2. SKYRIZI [Suspect]
     Active Substance: RISANKIZUMAB-RZAA
     Dosage: TIME INTERVAL: TOTAL: WEEK 4, FORM STRENGTH : 150MG/ML
     Route: 058
     Dates: start: 202409, end: 202409
  3. SKYRIZI [Suspect]
     Active Substance: RISANKIZUMAB-RZAA
     Dosage: FORM STRENGTH : 150MG/ML
     Route: 058
     Dates: start: 20241212

REACTIONS (23)
  - Upper limb fracture [Recovering/Resolving]
  - Pain [Not Recovered/Not Resolved]
  - Loss of consciousness [Unknown]
  - Influenza [Unknown]
  - Face injury [Unknown]
  - Rib fracture [Recovering/Resolving]
  - Therapeutic product effect incomplete [Recovering/Resolving]
  - Nail disorder [Recovering/Resolving]
  - Fall [Unknown]
  - Headache [Recovered/Resolved]
  - Nasopharyngitis [Not Recovered/Not Resolved]
  - Sinus congestion [Not Recovered/Not Resolved]
  - Paranasal sinus discomfort [Not Recovered/Not Resolved]
  - Dyspnoea [Not Recovered/Not Resolved]
  - Pruritus [Not Recovered/Not Resolved]
  - Sinus headache [Not Recovered/Not Resolved]
  - Musculoskeletal disorder [Not Recovered/Not Resolved]
  - Musculoskeletal stiffness [Not Recovered/Not Resolved]
  - Skin irritation [Unknown]
  - Rash maculo-papular [Unknown]
  - Pruritus [Unknown]
  - Skin burning sensation [Not Recovered/Not Resolved]
  - Drug ineffective [Unknown]

NARRATIVE: CASE EVENT DATE: 20250312
